FAERS Safety Report 9967003 (Version 2)
Quarter: 2014Q1

REPORT INFORMATION
  Report Type: Report from Study
  Country: US (occurrence: US)
  Receive Date: 20140305
  Receipt Date: 20140305
  Transmission Date: 20141002
  Serious: Yes (Other)
  Sender: FDA-Public Use
  Company Number: US-ASTRAZENECA-2014SE13815

PATIENT
  Age: 63 Year
  Sex: Male
  Weight: 80.3 kg

DRUGS (5)
  1. METOPROLOL SUCCINATE [Suspect]
     Indication: HEART RATE INCREASED
     Route: 048
     Dates: start: 2008
  2. BRILINTA [Suspect]
     Indication: ACUTE CORONARY SYNDROME
     Route: 048
     Dates: start: 20140110
  3. BRILINTA [Suspect]
     Indication: STENT PLACEMENT
     Route: 048
     Dates: start: 20140110
  4. ASPRIN [Concomitant]
  5. LIPITOR [Concomitant]
     Indication: LOW DENSITY LIPOPROTEIN
     Dates: start: 20140113

REACTIONS (4)
  - Coronary artery occlusion [Unknown]
  - Nasopharyngitis [Not Recovered/Not Resolved]
  - Cough [Unknown]
  - Off label use [Not Recovered/Not Resolved]
